FAERS Safety Report 26145575 (Version 2)
Quarter: 2025Q4

REPORT INFORMATION
  Report Type: Report from Study
  Country: CA (occurrence: CA)
  Receive Date: 20251211
  Receipt Date: 20251221
  Transmission Date: 20260117
  Serious: Yes (Death, Other)
  Sender: GILEAD
  Company Number: CA-GILEAD-2025-0732998

PATIENT
  Age: 54 Year
  Sex: Male

DRUGS (1)
  1. BREXUCABTAGENE AUTOLEUCEL [Suspect]
     Active Substance: BREXUCABTAGENE AUTOLEUCEL
     Indication: Product used for unknown indication
     Dosage: UNK
     Route: 065
     Dates: start: 20251009, end: 20251009

REACTIONS (5)
  - Death [Fatal]
  - Recurrent cancer [Unknown]
  - Fatigue [Unknown]
  - Feeling abnormal [Unknown]
  - Treatment failure [Unknown]

NARRATIVE: CASE EVENT DATE: 20251208
